FAERS Safety Report 6504236-5 (Version None)
Quarter: 2009Q4

REPORT INFORMATION
  Report Type: 
  Country: None (occurrence: None)
  Receive Date: 20091217
  Receipt Date: 20091118
  Transmission Date: 20100525
  Serious: Yes (Other)
  Sender: FDA-Public Use
  Company Number: PHFR2005GB02833

PATIENT
  Sex: Female
  Weight: 60 kg

DRUGS (10)
  1. DICLOFENAC SODIUM [Suspect]
     Dosage: 75MG/DAY
     Route: 065
  2. VOLTAROL OPHTHA (NVO) [Suspect]
  3. DIHYDROCODEINE (NGX) [Suspect]
     Route: 048
  4. CITALOPRAM HYDROBROMIDE [Suspect]
     Route: 065
  5. FOLIC ACID (NGX) [Suspect]
     Route: 065
  6. ORAL CONTRACEPTIVE NOS [Suspect]
     Route: 048
  7. METHOTREXATE [Suspect]
     Indication: RHEUMATOID ARTHRITIS
     Dosage: 25MG/DAY
     Route: 058
  8. HYDROXYCHLOROQUINE SULFATE [Suspect]
     Indication: RHEUMATOID ARTHRITIS
     Dosage: 200MG/DAY
     Route: 048
  9. ENBREL [Suspect]
     Indication: PSORIATIC ARTHROPATHY
     Dosage: 25 MG TWICE A WEEK
     Route: 058
     Dates: start: 20041210
  10. CLOPIDOGREL [Suspect]

REACTIONS (1)
  - GALACTORRHOEA [None]
